FAERS Safety Report 5444114-6 (Version None)
Quarter: 2007Q3

REPORT INFORMATION
  Report Type: 
  Country: None (occurrence: None)
  Receive Date: 20070831
  Receipt Date: 20070817
  Transmission Date: 20080115
  Serious: Yes (Other)
  Sender: FDA-Public Use
  Company Number: S06-CAN-03486-01

PATIENT
  Age: 49 Year
  Sex: Female

DRUGS (3)
  1. TIAZAC [Suspect]
  2. TIAZAC [Suspect]
  3. PERINDOPRIL ERBUMINE [Concomitant]

REACTIONS (7)
  - ATRIOVENTRICULAR BLOCK FIRST DEGREE [None]
  - BLOOD PRESSURE DECREASED [None]
  - FATIGUE [None]
  - JOINT SWELLING [None]
  - OEDEMA PERIPHERAL [None]
  - PULMONARY CONGESTION [None]
  - TRANSIENT ISCHAEMIC ATTACK [None]
